FAERS Safety Report 7794341-8 (Version None)
Quarter: 2011Q4

REPORT INFORMATION
  Report Type: 
  Country: None (occurrence: None)
  Receive Date: 20111004
  Receipt Date: 20110928
  Transmission Date: 20120403
  Serious: Yes (Disabling, Other)
  Sender: FDA-Public Use
  Company Number: CH-PFIZER INC-2011059684

PATIENT
  Age: 20 Year
  Sex: Male
  Weight: 80 kg

DRUGS (8)
  1. TRAMADOL HCL [Suspect]
     Indication: AXONAL NEUROPATHY
  2. LYRICA [Suspect]
     Indication: PAIN
     Dosage: 300 MG, 1-3X/DAY
     Route: 048
     Dates: start: 20100908
  3. AMITRIPTYLINE HCL [Concomitant]
     Dosage: 50 MG, 1-4X/DAY
     Route: 048
     Dates: start: 20100908
  4. HYDROCODONE [Concomitant]
     Dosage: UNK
  5. LYRICA [Suspect]
     Dosage: 150 MG, 6 TIMES DAILY
     Route: 048
  6. TRAMADOL HCL [Suspect]
     Indication: SOMATOFORM DISORDER
     Dosage: 100 MG, 3 - 4X/DAY
     Route: 048
     Dates: start: 20101119
  7. TETRALYSAL [Concomitant]
     Dosage: 300 MG
     Dates: start: 20100908
  8. MEDROL [Concomitant]
     Dosage: 32 MG
     Route: 048
     Dates: start: 20100908

REACTIONS (5)
  - SOMNOLENCE [None]
  - SLEEP APNOEA SYNDROME [None]
  - FATIGUE [None]
  - MEMORY IMPAIRMENT [None]
  - INTENTIONAL OVERDOSE [None]
